FAERS Safety Report 7583322-5 (Version None)
Quarter: 2011Q2

REPORT INFORMATION
  Report Type: 
  Country: None (occurrence: None)
  Receive Date: 20110627
  Receipt Date: 20110627
  Transmission Date: 20111010
  Serious: Yes (Other)
  Sender: FDA-Public Use
  Company Number: None

PATIENT
  Sex: Male

DRUGS (1)
  1. CLONIDINE [Suspect]
     Dosage: 1 TABLET EVERYDAY PO
     Route: 048
     Dates: start: 20110527, end: 20110623

REACTIONS (2)
  - ABNORMAL DREAMS [None]
  - PRODUCT SUBSTITUTION ISSUE [None]
